FAERS Safety Report 4341466-5 (Version None)
Quarter: 2004Q2

REPORT INFORMATION
  Report Type: 
  Country: None (occurrence: None)
  Receive Date: 20040420
  Receipt Date: 20040301
  Transmission Date: 20050107
  Serious: Yes (Hospitalization)
  Sender: FDA-Public Use
  Company Number: 200410453DE

PATIENT
  Age: 55 Year
  Sex: Female

DRUGS (2)
  1. TAXOTERE [Suspect]
     Indication: GASTRIC CANCER
     Route: 042
     Dates: start: 20040201
  2. DEXAMETHASONE [Concomitant]

REACTIONS (5)
  - CHILLS [None]
  - DERMATITIS [None]
  - HYPOTENSION [None]
  - PYREXIA [None]
  - SKIN REACTION [None]
